FAERS Safety Report 6581381-X (Version None)
Quarter: 2010Q1

REPORT INFORMATION
  Report Type: 
  Country: None (occurrence: None)
  Receive Date: 20100215
  Receipt Date: 20100122
  Transmission Date: 20100710
  Serious: Yes (Death, Disabling, Other)
  Sender: FDA-Public Use
  Company Number: US-BAYER-200911245NA

PATIENT
  Age: 39 Year
  Sex: Male
  Weight: 100 kg

DRUGS (22)
  1. MAGNEVIST [Suspect]
     Indication: IMAGING PROCEDURE
  2. OMNISCAN [Suspect]
     Indication: IMAGING PROCEDURE
  3. OPTIMARK [Suspect]
     Indication: NUCLEAR MAGNETIC RESONANCE IMAGING
  4. MULTIHANCE [Suspect]
     Indication: NUCLEAR MAGNETIC RESONANCE IMAGING
  5. PROHANCE [Suspect]
     Indication: NUCLEAR MAGNETIC RESONANCE IMAGING
  6. UNSPECIFIED GADOLINIUM-BASED CONTRAST AGENT [Suspect]
     Route: 042
     Dates: start: 20061207, end: 20061207
  7. UNSPECIFIED GADOLINIUM-BASED CONTRAST AGENT [Suspect]
     Dates: start: 20070306, end: 20070306
  8. UNSPECIFIED GADOLINIUM-BASED CONTRAST AGENT [Suspect]
     Dates: start: 20061208, end: 20061208
  9. UNSPECIFIED GADOLINIUM-BASED CONTRAST AGENT [Suspect]
     Dates: start: 20070215, end: 20070215
  10. RENAGEL [Concomitant]
  11. FUROSEMIDE [Concomitant]
  12. LANTUS [Concomitant]
  13. HUMALOG [Concomitant]
  14. NEURONTIN [Concomitant]
     Dosage: NOTED AS OF JUL-2006
  15. REQUIP [Concomitant]
     Dosage: NOTED AS OF JUL-2006
  16. EPOGEN [Concomitant]
     Dosage: 5000 UNITS TWICE WEEKLY; DOSE INCREASED AS OF 10-OCT-2005
     Route: 058
  17. EPOGEN [Concomitant]
     Dosage: WITH DIALYSIS; NOTED AS OF JUL-2006
  18. COUMADIN [Concomitant]
  19. PROCRIT [Concomitant]
     Dosage: 20000 UNITS; NOTED SEP-2003
     Route: 058
  20. FOSRENOL [Concomitant]
     Dosage: AFTER EACH MEAL; NOTED AUG-2008
  21. ARANESP [Concomitant]
     Dosage: NOTED AUG-2008
  22. PHOSLO GELCAPS [Concomitant]
     Dosage: TOTAL DAILY DOSE: 2001 MG
     Route: 048

REACTIONS (32)
  - ANXIETY [None]
  - ARTHRALGIA [None]
  - ASTHENIA [None]
  - BLISTER [None]
  - DEFORMITY [None]
  - DRY SKIN [None]
  - FATIGUE [None]
  - FIBROSIS [None]
  - GENERALISED OEDEMA [None]
  - HYPOAESTHESIA [None]
  - JOINT CONTRACTURE [None]
  - JOINT RANGE OF MOTION DECREASED [None]
  - MOBILITY DECREASED [None]
  - MUSCULAR WEAKNESS [None]
  - MUSCULOSKELETAL STIFFNESS [None]
  - MYALGIA [None]
  - NEPHROGENIC SYSTEMIC FIBROSIS [None]
  - OEDEMA PERIPHERAL [None]
  - PAIN [None]
  - PAIN IN EXTREMITY [None]
  - PAIN OF SKIN [None]
  - PARAESTHESIA [None]
  - PRURITUS [None]
  - RASH GENERALISED [None]
  - RASH MACULO-PAPULAR [None]
  - RASH PRURITIC [None]
  - RENAL INJURY [None]
  - SKIN DISORDER [None]
  - SKIN HYPERTROPHY [None]
  - SKIN INDURATION [None]
  - SKIN PLAQUE [None]
  - SKIN TIGHTNESS [None]
